FAERS Safety Report 7242412-7 (Version None)
Quarter: 2011Q1

REPORT INFORMATION
  Report Type: 
  Country: None (occurrence: None)
  Receive Date: 20110125
  Receipt Date: 20110112
  Transmission Date: 20110831
  Serious: No
  Sender: FDA-Public Use
  Company Number: US-BIOGENIDEC-2011BI002193

PATIENT
  Age: 72 Year
  Sex: Female

DRUGS (2)
  1. TYSABRI [Suspect]
     Indication: MULTIPLE SCLEROSIS
     Route: 042
     Dates: start: 20080304
  2. AVONEX [Concomitant]
     Indication: MULTIPLE SCLEROSIS
     Route: 030
     Dates: start: 19991110

REACTIONS (8)
  - POLLAKIURIA [None]
  - ACNE [None]
  - PRURITUS [None]
  - PAIN IN EXTREMITY [None]
  - EPHELIDES [None]
  - ERYTHEMA [None]
  - MICTURITION URGENCY [None]
  - MUSCULAR WEAKNESS [None]
